FAERS Safety Report 11481503 (Version 1)
Quarter: 2015Q3

REPORT INFORMATION
  Report Type: Spontaneous
  Country: IT (occurrence: IT)
  Receive Date: 20150909
  Receipt Date: 20150909
  Transmission Date: 20151125
  Serious: Yes (Hospitalization)
  Sender: FDA-Public Use
  Company Number: IT-ABBVIE-15P-083-1460978-00

PATIENT
  Age: 56 Year
  Sex: Female

DRUGS (2)
  1. TRITTICO [Suspect]
     Active Substance: TRAZODONE HYDROCHLORIDE
     Indication: PRODUCT USED FOR UNKNOWN INDICATION
     Dosage: EXTENDED RELEASE
     Route: 048
     Dates: start: 20150824, end: 20150824
  2. DEPAKIN [Suspect]
     Active Substance: VALPROATE SODIUM
     Indication: PRODUCT USED FOR UNKNOWN INDICATION
     Dosage: 4 DOSAGE FORM TOTAL
     Route: 048
     Dates: start: 20150824, end: 20150824

REACTIONS (2)
  - Agitation [Unknown]
  - Drug abuse [Unknown]

NARRATIVE: CASE EVENT DATE: 20150824
